FAERS Safety Report 13352673 (Version 2)
Quarter: 2017Q2

REPORT INFORMATION
  Report Type: Report from Study
  Country: None (occurrence: US)
  Receive Date: 20170320
  Receipt Date: 20170508
  Transmission Date: 20170830
  Serious: Yes (Death)
  Sender: FDA-Public Use
  Company Number: US-ABBVIE-17P-163-1909880-00

PATIENT
  Age: 54 Year
  Sex: Male
  Weight: 59.02 kg

DRUGS (1)
  1. VENCLEXTA [Suspect]
     Active Substance: VENETOCLAX
     Indication: PLASMA CELL MYELOMA
     Route: 048
     Dates: start: 20170221, end: 20170313

REACTIONS (4)
  - Gait disturbance [Not Recovered/Not Resolved]
  - Death [Fatal]
  - Platelet count decreased [Not Recovered/Not Resolved]
  - Laboratory test abnormal [Not Recovered/Not Resolved]

NARRATIVE: CASE EVENT DATE: 20170313
